FAERS Safety Report 6960768-7 (Version None)
Quarter: 2010Q3

REPORT INFORMATION
  Report Type: 
  Country: None (occurrence: None)
  Receive Date: 20100823
  Receipt Date: 20100707
  Transmission Date: 20110219
  Serious: No
  Sender: FDA-Public Use
  Company Number: 015223

PATIENT
  Sex: Male
  Weight: 88 kg

DRUGS (6)
  1. CIMZIA [Suspect]
     Indication: CROHN'S DISEASE
     Dosage: (400 MG 1X/MONTH SUBCUTANEOUS)
     Route: 058
     Dates: start: 20090101
  2. COLAXAL [Concomitant]
  3. LOMOTIL /00034001/ [Concomitant]
  4. IRON [Concomitant]
  5. FLAXSEED OIL [Concomitant]
  6. FISH OIL [Concomitant]

REACTIONS (5)
  - EYE DISCHARGE [None]
  - NASAL DISCOMFORT [None]
  - RASH [None]
  - SCAB [None]
  - VISUAL ACUITY REDUCED [None]
